FAERS Safety Report 19030975 (Version 1)
Quarter: 2021Q1

REPORT INFORMATION
  Report Type: Spontaneous
  Country: US (occurrence: US)
  Receive Date: 20210319
  Receipt Date: 20210319
  Transmission Date: 20210420
  Serious: Yes (Hospitalization, Other)
  Sender: FDA-Public Use
  Company Number: None

PATIENT
  Sex: Female

DRUGS (4)
  1. ALIGN; CITRACAL; DIGESTIVE ENZYME; MULTIVITAMIN; PREDNISONE [Concomitant]
  2. XERMELO; ZYRTEC [Concomitant]
  3. OCREOTIDE [Suspect]
     Active Substance: OCTREOTIDE
     Indication: CARCINOID TUMOUR OF THE SMALL BOWEL
     Dosage: ?          OTHER FREQUENCY:Q8H UP TO 9 X DAY;?
     Route: 058
     Dates: start: 20170720
  4. AFINITOR [Suspect]
     Active Substance: EVEROLIMUS
     Indication: CARCINOID TUMOUR OF THE SMALL BOWEL
     Route: 048
     Dates: start: 20210106

REACTIONS (1)
  - Thrombosis [None]
